FAERS Safety Report 9026612 (Version 1)
Quarter: 2013Q1

REPORT INFORMATION
  Report Type: Spontaneous
  Country: US (occurrence: None)
  Receive Date: 20130114
  Receipt Date: 20130114
  Transmission Date: 20140127
  Serious: Yes (Other)
  Sender: FDA-Public Use
  Company Number: None

PATIENT
  Sex: Male
  Weight: 99.79 kg

DRUGS (1)
  1. SIMPLY RIGHT ARTHRITIS PAIN [Suspect]
     Dosage: 2 TABS (650 MG) 2 TIMES A DAY
     Dates: start: 20121215

REACTIONS (2)
  - Urticaria [None]
  - Product substitution issue [None]
